FAERS Safety Report 4745504-7 (Version None)
Quarter: 2005Q3

REPORT INFORMATION
  Report Type: 
  Country: None (occurrence: None)
  Receive Date: 20050815
  Receipt Date: 20041126
  Transmission Date: 20060218
  Serious: Yes (Other)
  Sender: FDA-Public Use
  Company Number: DE-MERCK-0412DEU00070

PATIENT
  Age: 56 Year
  Sex: Male

DRUGS (20)
  1. VIOXX [Suspect]
     Indication: CANCER PAIN
     Route: 048
     Dates: start: 20000404
  2. VIOXX [Suspect]
     Route: 048
     Dates: end: 20030219
  3. VIOXX [Suspect]
     Route: 048
     Dates: start: 20010921
  4. VIOXX [Suspect]
     Indication: BACK PAIN
     Route: 048
     Dates: start: 20000404
  5. VIOXX [Suspect]
     Route: 048
     Dates: end: 20030219
  6. VIOXX [Suspect]
     Route: 048
     Dates: start: 20010921
  7. THALIDOMIDE [Suspect]
     Indication: PLASMACYTOMA
     Route: 065
     Dates: start: 20011101, end: 20040301
  8. DEXAMETHASONE [Concomitant]
     Route: 065
     Dates: start: 20011101
  9. ZOLEDRONATE DISODIUM [Concomitant]
     Route: 065
     Dates: start: 20011101
  10. MORPHINE SULFATE [Concomitant]
     Route: 065
  11. PIRETANIDE [Concomitant]
     Route: 065
     Dates: start: 20021001
  12. MAGNESIUM (UNSPECIFIED) [Concomitant]
     Route: 065
  13. FUROSEMIDE [Concomitant]
     Route: 065
  14. PAMIDRONATE DISODIUM [Concomitant]
     Route: 065
     Dates: start: 20000607
  15. ZOLEDRONIC ACID [Concomitant]
     Route: 065
     Dates: start: 20010613
  16. CLEMASTINE FUMARATE [Concomitant]
     Route: 065
     Dates: start: 20010913
  17. PREDNISOLONE SODIUM SUCCINATE [Concomitant]
     Route: 065
     Dates: start: 20010913
  18. MOXIFLOXACIN HYDROCHLORIDE [Concomitant]
     Route: 065
     Dates: start: 20020413
  19. TRIFLUPROMAZINE HYDROCHLORIDE [Concomitant]
     Route: 065
     Dates: start: 20020417
  20. BIPERIDEN HYDROCHLORIDE [Concomitant]
     Route: 065
     Dates: start: 20020418

REACTIONS (18)
  - ADVERSE EVENT [None]
  - ASTHENIA [None]
  - CARDIAC FAILURE [None]
  - CARDIOVASCULAR DISORDER [None]
  - COUGH [None]
  - DYSPNOEA [None]
  - GLUCOSE TOLERANCE IMPAIRED [None]
  - HYPERSENSITIVITY [None]
  - MICTURITION DISORDER [None]
  - MUSCLE SPASMS [None]
  - OEDEMA PERIPHERAL [None]
  - PAIN IN EXTREMITY [None]
  - PHLEBITIS [None]
  - PLASMACYTOMA [None]
  - POLYNEUROPATHY [None]
  - SEBORRHOEIC DERMATITIS [None]
  - TINNITUS [None]
  - URTICARIA [None]
